FAERS Safety Report 19591529 (Version 1)
Quarter: 2021Q3

REPORT INFORMATION
  Report Type: Report from Study
  Country: CN (occurrence: CN)
  Receive Date: 20210722
  Receipt Date: 20210722
  Transmission Date: 20211014
  Serious: Yes (Other)
  Sender: FDA-Public Use
  Company Number: CN-JNJFOC-20210742038

PATIENT
  Age: 16 Year
  Sex: Male

DRUGS (3)
  1. REMICADE [Suspect]
     Active Substance: INFLIXIMAB
     Indication: CROHN^S DISEASE
     Route: 042
  2. 5?AMINOSALICYLIC ACID [Concomitant]
     Active Substance: MESALAMINE
  3. THALIDOMIDE [Concomitant]
     Active Substance: THALIDOMIDE

REACTIONS (1)
  - Pulmonary tuberculosis [Unknown]
